FAERS Safety Report 18866840 (Version 2)
Quarter: 2021Q1

REPORT INFORMATION
  Report Type: Spontaneous
  Country: BE (occurrence: BE)
  Receive Date: 20210209
  Receipt Date: 20210302
  Transmission Date: 20210420
  Serious: Yes (Congenital Anomaly, Other)
  Sender: FDA-Public Use
  Company Number: BE-PFIZER INC-2021083463

PATIENT
  Sex: Male

DRUGS (1)
  1. MISOPROSTOL. [Suspect]
     Active Substance: MISOPROSTOL
     Indication: ABORTION INDUCED
     Dosage: UNK, SINGLE
     Route: 064

REACTIONS (3)
  - Maternal exposure during pregnancy [Unknown]
  - Aplasia cutis congenita [Recovered/Resolved]
  - Premature baby [Unknown]
